FAERS Safety Report 19755102 (Version 1)
Quarter: 2021Q3

REPORT INFORMATION
  Report Type: Report from Study
  Country: CA (occurrence: CA)
  Receive Date: 20210827
  Receipt Date: 20210827
  Transmission Date: 20211014
  Serious: Yes (Death, Other)
  Sender: FDA-Public Use
  Company Number: CA-ORION CORPORATION ORION PHARMA-21_00015626

PATIENT
  Age: 70 Year
  Sex: Female

DRUGS (7)
  1. ERELZI [Suspect]
     Active Substance: ETANERCEPT-SZZS
     Indication: RHEUMATOID ARTHRITIS
     Route: 058
  2. CELEBREX [Concomitant]
     Active Substance: CELECOXIB
     Route: 065
  3. METHOTREXATE (TRADE NAME UNKNOWN) [Suspect]
     Active Substance: METHOTREXATE
     Indication: PRODUCT USED FOR UNKNOWN INDICATION
     Route: 048
  4. ENBREL [Concomitant]
     Active Substance: ETANERCEPT
     Route: 065
  5. ORENCIA [Concomitant]
     Active Substance: ABATACEPT
     Route: 065
  6. PREDNISONE. [Concomitant]
     Active Substance: PREDNISONE
     Route: 065
  7. METHOTREXATE (TRADE NAME UNKNOWN) [Suspect]
     Active Substance: METHOTREXATE
     Route: 058

REACTIONS (9)
  - Concomitant disease aggravated [Fatal]
  - Lung carcinoma cell type unspecified stage IV [Fatal]
  - Metastases to bone [Fatal]
  - Dizziness [Fatal]
  - Fall [Fatal]
  - Lung cancer metastatic [Fatal]
  - Epistaxis [Fatal]
  - Fatigue [Fatal]
  - Metastases to spine [Fatal]
